FAERS Safety Report 20735466 (Version 1)
Quarter: 2022Q2

REPORT INFORMATION
  Report Type: Spontaneous
  Country: US (occurrence: None)
  Receive Date: 20220421
  Receipt Date: 20220421
  Transmission Date: 20220721
  Serious: No
  Sender: FDA-Public Use
  Company Number: None

PATIENT
  Sex: Female
  Weight: 47.2 kg

DRUGS (3)
  1. TAXOTERE [Suspect]
     Active Substance: DOCETAXEL
  2. PERTUZUMAB [Concomitant]
     Active Substance: PERTUZUMAB
  3. TRASTUZUMAB 9HERCEPTIN) [Concomitant]

REACTIONS (2)
  - Anaphylactic reaction [None]
  - Cough [None]

NARRATIVE: CASE EVENT DATE: 20220415
